FAERS Safety Report 25082702 (Version 2)
Quarter: 2025Q3

REPORT INFORMATION
  Report Type: Report from Study
  Country: BR (occurrence: BR)
  Receive Date: 20250317
  Receipt Date: 20250803
  Transmission Date: 20251021
  Serious: Yes (Life-Threatening, Hospitalization, Other)
  Sender: ALEXION PHARMACEUTICALS
  Company Number: BR-AstraZeneca-CH-00826460A

PATIENT
  Age: 55 Year
  Sex: Female
  Weight: 90 kg

DRUGS (1)
  1. BENRALIZUMAB [Suspect]
     Active Substance: BENRALIZUMAB
     Indication: Asthma
     Dosage: UNK, Q8W
     Dates: start: 202109, end: 20250116

REACTIONS (19)
  - Pneumonia [Recovering/Resolving]
  - Asthma [Recovered/Resolved]
  - Oxygen saturation decreased [Recovered/Resolved]
  - Thrombosis [Unknown]
  - Heart rate decreased [Recovered/Resolved]
  - Oedema peripheral [Recovering/Resolving]
  - Bone demineralisation [Unknown]
  - Phlebitis [Recovered/Resolved]
  - Dyspnoea [Unknown]
  - Chest discomfort [Unknown]
  - Cardiac disorder [Unknown]
  - Skin discolouration [Unknown]
  - Nervousness [Unknown]
  - Drug hypersensitivity [Unknown]
  - Insomnia [Unknown]
  - Pain [Unknown]
  - Fibromyalgia [Unknown]
  - Pain in extremity [Unknown]
  - Headache [Unknown]

NARRATIVE: CASE EVENT DATE: 20240101
